FAERS Safety Report 4866510-8 (Version None)
Quarter: 2005Q4

REPORT INFORMATION
  Report Type: 
  Country: None (occurrence: None)
  Receive Date: 20051227
  Receipt Date: 20050929
  Transmission Date: 20060501
  Serious: Yes (Hospitalization, Disabling, Other)
  Sender: FDA-Public Use
  Company Number: US-MERCK-0510USA00436

PATIENT
  Age: 59 Year
  Sex: Male
  Weight: 96 kg

DRUGS (20)
  1. VIOXX [Suspect]
     Indication: ARTHRITIS
     Route: 048
     Dates: start: 20020301, end: 20031211
  2. ENDODAN [Concomitant]
     Route: 065
  3. METOPROLOL [Concomitant]
     Route: 065
  4. TEMAZEPAM [Concomitant]
     Route: 065
  5. HYDROCODONE BITARTRATE [Concomitant]
     Route: 065
  6. LIPITOR [Concomitant]
     Route: 065
  7. WELLBUTRIN [Concomitant]
     Route: 065
  8. PERCODAN [Concomitant]
     Route: 065
  9. BACLOFEN [Concomitant]
     Indication: MUSCLE SPASMS
     Route: 065
  10. BACLOFEN [Concomitant]
     Route: 065
  11. NAPROSYN [Concomitant]
     Route: 065
  12. NIASPAN [Concomitant]
     Route: 065
     Dates: end: 20030115
  13. ATENOLOL [Concomitant]
     Route: 065
  14. ATENOLOL [Concomitant]
     Route: 065
  15. ASPIRIN [Concomitant]
     Route: 065
  16. NITROGLYCERIN [Concomitant]
     Route: 065
  17. ZOLOFT [Concomitant]
     Route: 065
  18. LOPRESSOR [Concomitant]
     Route: 065
  19. ATIVAN [Concomitant]
     Route: 065
  20. PRAVACHOL [Concomitant]
     Route: 065

REACTIONS (13)
  - ANGINA UNSTABLE [None]
  - AORTIC ANEURYSM [None]
  - CARDIAC DISORDER [None]
  - CHEST PAIN [None]
  - CORONARY ARTERY OCCLUSION [None]
  - DYSPNOEA [None]
  - GASTROOESOPHAGEAL REFLUX DISEASE [None]
  - MITRAL VALVE INCOMPETENCE [None]
  - MYOCARDIAL INFARCTION [None]
  - RENAL ARTERY STENOSIS [None]
  - RENAL DISORDER [None]
  - RENAL FAILURE [None]
  - SPLENOMEGALY [None]
